FAERS Safety Report 4796495-4 (Version None)
Quarter: 2005Q3

REPORT INFORMATION
  Report Type: 
  Country: None (occurrence: None)
  Receive Date: 20050916
  Receipt Date: 20041210
  Transmission Date: 20060218
  Serious: Yes (Other)
  Sender: FDA-Public Use
  Company Number: US-JNJFOC-20041006895

PATIENT
  Age: 37 Year
  Sex: Female
  Weight: 56.6996 kg

DRUGS (4)
  1. TOPAMAX [Suspect]
     Indication: HEADACHE
     Dosage: 25 MG, 1 IN 1 DAY, ORAL
     Route: 048
     Dates: start: 20041001, end: 20041001
  2. IMITREX [Concomitant]
  3. FIORICET [Concomitant]
  4. AMITRIPTYLINE HCL [Concomitant]

REACTIONS (1)
  - SUICIDAL IDEATION [None]
